FAERS Safety Report 20045434 (Version 2)
Quarter: 2022Q1

REPORT INFORMATION
  Report Type: Spontaneous
  Country: US (occurrence: US)
  Receive Date: 20211108
  Receipt Date: 20220217
  Transmission Date: 20220424
  Serious: Yes (Other)
  Sender: FDA-Public Use
  Company Number: US-PFIZER INC-202101505624

PATIENT
  Age: 65 Year
  Sex: Female

DRUGS (2)
  1. INLYTA [Suspect]
     Active Substance: AXITINIB
     Dosage: UNK
     Dates: start: 20210211
  2. INLYTA [Suspect]
     Active Substance: AXITINIB
     Dosage: 2 MG, TWICE DAILY (BID) (4MG DAILY)
     Dates: start: 202109

REACTIONS (3)
  - Diabetes mellitus [Unknown]
  - Neuralgia [Recovered/Resolved]
  - Arthralgia [Unknown]

NARRATIVE: CASE EVENT DATE: 20210101
